FAERS Safety Report 16305270 (Version 1)
Quarter: 2019Q2

REPORT INFORMATION
  Report Type: Spontaneous
  Country: ES (occurrence: ES)
  Receive Date: 20190513
  Receipt Date: 20190513
  Transmission Date: 20190711
  Serious: Yes (Death)
  Sender: FDA-Public Use
  Company Number: ES-ROCHE-2317855

PATIENT
  Age: 68 Year
  Sex: Female

DRUGS (1)
  1. TOCILIZUMAB. [Suspect]
     Active Substance: TOCILIZUMAB
     Indication: RHEUMATOID ARTHRITIS
     Route: 042
     Dates: start: 20180911, end: 20190313

REACTIONS (1)
  - Intestinal perforation [Fatal]

NARRATIVE: CASE EVENT DATE: 20190413
